FAERS Safety Report 4956393-X (Version None)
Quarter: 2006Q1

REPORT INFORMATION
  Report Type: 
  Country: None (occurrence: None)
  Receive Date: 20060328
  Receipt Date: 20060328
  Transmission Date: 20060701
  Serious: Yes (Other)
  Sender: FDA-Public Use
  Company Number: None

PATIENT
  Age: 35 Year
  Sex: Female

DRUGS (1)
  1. PREGABALIN 50 MG/TID [Suspect]
     Indication: NEUROPATHY
     Dosage: 500 MG TID PO
     Route: 048
     Dates: start: 20060214, end: 20060216

REACTIONS (3)
  - RASH ERYTHEMATOUS [None]
  - RASH GENERALISED [None]
  - SKIN ULCER [None]
